FAERS Safety Report 7457031-7 (Version None)
Quarter: 2011Q1

REPORT INFORMATION
  Report Type: 
  Country: None (occurrence: None)
  Receive Date: 20110302
  Receipt Date: 20101216
  Transmission Date: 20110831
  Serious: No
  Sender: FDA-Public Use
  Company Number: 023889

PATIENT
  Sex: Female
  Weight: 157 kg

DRUGS (6)
  1. ASACOL [Concomitant]
  2. FLAGYL [Concomitant]
  3. CIPRO [Concomitant]
  4. PREDNISONE TAB [Concomitant]
  5. CIMZIA [Suspect]
     Indication: CROHN'S DISEASE
     Dosage: (400MG/ML SUBCUTANEOUS)
     Route: 058
     Dates: start: 20090901
  6. PROMETHAZINE [Concomitant]

REACTIONS (4)
  - FISTULA [None]
  - SMALL INTESTINE ULCER [None]
  - VOMITING [None]
  - PAIN [None]
